APPROVED DRUG PRODUCT: HALOTEX
Active Ingredient: HALOPROGIN
Strength: 1%
Dosage Form/Route: SOLUTION;TOPICAL
Application: N016943 | Product #001
Applicant: WESTWOOD SQUIBB PHARMACEUTICALS INC
Approved: Approved Prior to Jan 1, 1982 | RLD: No | RS: No | Type: DISCN